FAERS Safety Report 14421634 (Version 1)
Quarter: 2018Q1

REPORT INFORMATION
  Report Type: Report from Study
  Country: US (occurrence: US)
  Receive Date: 20180122
  Receipt Date: 20180122
  Transmission Date: 20180509
  Serious: No
  Sender: FDA-Public Use
  Company Number: US-AMGEN-USASL2017118840

PATIENT
  Age: 69 Year
  Sex: Female

DRUGS (1)
  1. REPATHA [Suspect]
     Active Substance: EVOLOCUMAB
     Indication: HYPERCHOLESTEROLAEMIA
     Dosage: 140 MG, Q2WK
     Route: 065

REACTIONS (8)
  - Dizziness postural [Unknown]
  - Stress [Unknown]
  - Asthenia [Unknown]
  - Fatigue [Unknown]
  - Urinary tract infection [Unknown]
  - Nasal dryness [Unknown]
  - Dry eye [Unknown]
  - Muscle spasms [Unknown]
